FAERS Safety Report 8891409 (Version 1)
Quarter: 2012Q4

REPORT INFORMATION
  Report Type: Spontaneous
  Country: US (occurrence: None)
  Receive Date: 20121105
  Receipt Date: 20121105
  Transmission Date: 20130627
  Serious: Yes (Life-Threatening, Hospitalization)
  Sender: FDA-Public Use
  Company Number: None

PATIENT
  Age: 80 Year
  Sex: Male
  Weight: 85.7 kg

DRUGS (2)
  1. WARFARIN [Suspect]
     Indication: DEEP VEIN THROMBOSIS
     Dates: start: 20120905, end: 20120911
  2. ENOXAPARIN [Suspect]
     Route: 058
     Dates: start: 20120905, end: 20120911

REACTIONS (3)
  - International normalised ratio increased [None]
  - Drug interaction [None]
  - Haemorrhage [None]
